FAERS Safety Report 8308139-5 (Version None)
Quarter: 2012Q2

REPORT INFORMATION
  Report Type: 
  Country: None (occurrence: None)
  Receive Date: 20120424
  Receipt Date: 20120412
  Transmission Date: 20120825
  Serious: Yes (Other)
  Sender: FDA-Public Use
  Company Number: TW-ROCHE-1056027

PATIENT
  Age: 45 Year
  Sex: Male

DRUGS (5)
  1. LEUCOVORIN CALCIUM [Concomitant]
     Indication: COLORECTAL CANCER
  2. BEVACIZUMAB [Suspect]
     Indication: COLORECTAL CANCER
     Route: 065
  3. OXALIPLATIN [Concomitant]
     Indication: COLORECTAL CANCER
  4. IRINOTECAN HCL [Concomitant]
     Indication: COLORECTAL CANCER
  5. FLUOROURACIL [Concomitant]
     Indication: COLORECTAL CANCER

REACTIONS (1)
  - PNEUMOTHORAX [None]
